FAERS Safety Report 8696674 (Version 2)
Quarter: 2012Q4

REPORT INFORMATION
  Report Type: 
  Country: FR (occurrence: FR)
  Receive Date: 20120801
  Receipt Date: 20121221
  Transmission Date: 20130627
  Serious: Yes (Hospitalization)
  Sender: FDA-Public Use
  Company Number: FR-VERTEX PHARMACEUTICALS INC.-000000000000001275

PATIENT
  Age: 46 Year
  Sex: Male
  Weight: 60 kg

DRUGS (2)
  1. INCIVO [Suspect]
     Indication: HEPATITIS C
     Dosage: Dosage Form: Tablet
     Route: 048
     Dates: start: 20120626
  2. INCIVO [Suspect]
     Dosage: Dosage Form: Tablet
     Route: 048

REACTIONS (4)
  - Renal failure [Unknown]
  - Rash erythematous [Recovered/Resolved]
  - Off label use [Unknown]
  - Drug prescribing error [Recovered/Resolved]
